FAERS Safety Report 7570719-2 (Version None)
Quarter: 2011Q2

REPORT INFORMATION
  Report Type: 
  Country: None (occurrence: None)
  Receive Date: 20110622
  Receipt Date: 20110622
  Transmission Date: 20111010
  Serious: Yes (Other)
  Sender: FDA-Public Use
  Company Number: None

PATIENT
  Sex: Female
  Weight: 68.2 kg

DRUGS (1)
  1. CIPROFLOXACIN [Suspect]
     Indication: CELLULITIS
     Dosage: 500MG 1 TAB 2X DAILY, ORAL
     Route: 048
     Dates: start: 20110608, end: 20110615

REACTIONS (7)
  - MUSCULOSKELETAL PAIN [None]
  - VISION BLURRED [None]
  - HYPERAESTHESIA [None]
  - HEADACHE [None]
  - ARTHRALGIA [None]
  - MYALGIA [None]
  - CONSTIPATION [None]
